FAERS Safety Report 7919543-9 (Version None)
Quarter: 2011Q4

REPORT INFORMATION
  Report Type: 
  Country: None (occurrence: None)
  Receive Date: 20111116
  Receipt Date: 20111116
  Transmission Date: 20120403
  Serious: Yes (Life-Threatening, Hospitalization, Disabling, Other)
  Sender: FDA-Public Use
  Company Number: None

PATIENT
  Age: 75 Year
  Sex: Female
  Weight: 82.1011 kg

DRUGS (3)
  1. FLECAINIDE ACETATE [Concomitant]
  2. LISINOPRIL [Concomitant]
  3. PRADAXA [Suspect]
     Indication: ATRIAL FIBRILLATION
     Dosage: TAKE 1 TABLET TWICE DAILY
     Dates: start: 20101101, end: 20111001

REACTIONS (4)
  - DIZZINESS [None]
  - BLINDNESS UNILATERAL [None]
  - VISUAL IMPAIRMENT [None]
  - CEREBROVASCULAR ACCIDENT [None]
